FAERS Safety Report 9742523 (Version 1)
Quarter: 2013Q4

REPORT INFORMATION
  Report Type: Spontaneous
  Country: FR (occurrence: FR)
  Receive Date: 20131210
  Receipt Date: 20131210
  Transmission Date: 20140711
  Serious: Yes (Hospitalization)
  Sender: FDA-Public Use
  Company Number: PHHY2013FR142126

PATIENT
  Age: 39 Year
  Sex: Female

DRUGS (5)
  1. TEGRETOL [Suspect]
     Dosage: 200 MG, QD (FOR 4 DAYS)
     Route: 048
     Dates: start: 20131025
  2. TEGRETOL [Suspect]
     Dosage: 400 MG, QD (FOR 6 DAYS)
     Route: 048
  3. TEGRETOL [Suspect]
     Dosage: 600 MG, QD
     Dates: end: 20131107
  4. VIMPAT [Concomitant]
     Indication: GRAND MAL CONVULSION
     Dosage: 150 MG, BID
     Dates: start: 201307
  5. URBANYL [Concomitant]
     Dosage: 5 MG

REACTIONS (4)
  - Inflammation [Recovered/Resolved]
  - Rash morbilliform [Recovered/Resolved]
  - Hyperthermia [Recovered/Resolved]
  - Eosinophilia [Recovered/Resolved]
